FAERS Safety Report 25871748 (Version 1)
Quarter: 2025Q4

REPORT INFORMATION
  Report Type: Spontaneous
  Country: GB (occurrence: GB)
  Receive Date: 20251001
  Receipt Date: 20251001
  Transmission Date: 20260117
  Serious: Yes (Other)
  Sender: ELI LILLY AND COMPANY
  Company Number: GB-MHRA-EMIS-151668-e7f14a35-227d-4f8f-8065-affdcf1c3c59

PATIENT
  Age: 81 Year
  Sex: Male
  Weight: 92 kg

DRUGS (2)
  1. MOUNJARO [Suspect]
     Active Substance: TIRZEPATIDE
     Indication: Product used for unknown indication
     Dosage: 2.5 MG, WEEKLY (1/W)
     Route: 058
     Dates: start: 20250730
  2. MOUNJARO [Suspect]
     Active Substance: TIRZEPATIDE
     Dosage: 2.5 MG, WEEKLY (1/W)
     Route: 058
     Dates: start: 20250909

REACTIONS (1)
  - Hypomania [Unknown]
